FAERS Safety Report 25143200 (Version 1)
Quarter: 2025Q2

REPORT INFORMATION
  Report Type: Spontaneous
  Country: US (occurrence: US)
  Receive Date: 20250401
  Receipt Date: 20250401
  Transmission Date: 20250716
  Serious: Yes (Hospitalization)
  Sender: MARKSANS
  Company Number: US-MARKSANS PHARMA LIMITED-MPL202500029

PATIENT

DRUGS (1)
  1. METFORMIN HYDROCHLORIDE [Suspect]
     Active Substance: METFORMIN HYDROCHLORIDE
     Indication: Poisoning
     Route: 048

REACTIONS (3)
  - Mental status changes [Unknown]
  - Hypoglycaemia [Recovered/Resolved]
  - Overdose [Unknown]
